FAERS Safety Report 23702129 (Version 1)
Quarter: 2024Q2

REPORT INFORMATION
  Report Type: Spontaneous
  Country: US (occurrence: None)
  Receive Date: 20240402
  Receipt Date: 20240402
  Transmission Date: 20240716
  Serious: Yes (Hospitalization)
  Sender: FDA-Public Use
  Company Number: None

PATIENT
  Age: 21 Year
  Sex: Female

DRUGS (2)
  1. SIKLOS [Suspect]
     Active Substance: HYDROXYUREA
     Indication: Sickle cell anaemia with crisis
     Dosage: 2,000MG DAILY BY MOUTH?
     Route: 048
     Dates: start: 202104
  2. OXBRYTA [Suspect]
     Active Substance: VOXELOTOR
     Indication: Sickle cell anaemia with crisis
     Dosage: 1500MG DAILY BY MOUTH?
     Route: 048
     Dates: start: 202003

REACTIONS (1)
  - Sickle cell anaemia with crisis [None]

NARRATIVE: CASE EVENT DATE: 20240301
